FAERS Safety Report 9168213 (Version 2)
Quarter: 2013Q2

REPORT INFORMATION
  Report Type: Spontaneous
  Country: US (occurrence: US)
  Receive Date: 20130318
  Receipt Date: 20130619
  Transmission Date: 20140414
  Serious: Yes (Hospitalization, Other)
  Sender: FDA-Public Use
  Company Number: US-BAYER-2013-030620

PATIENT
  Age: 16 Year
  Sex: Female
  Weight: 65.76 kg

DRUGS (1)
  1. YAZ [Suspect]
     Dosage: UNK
     Dates: start: 201207, end: 201210

REACTIONS (13)
  - Blindness [None]
  - Cerebrovascular accident [None]
  - Deep vein thrombosis [Recovered/Resolved]
  - Pelvic venous thrombosis [Recovered/Resolved]
  - Thrombophlebitis [None]
  - Deep vein thrombosis [Recovered/Resolved]
  - Injury [Recovered/Resolved]
  - Neuromyopathy [None]
  - Pain [Recovered/Resolved]
  - Emotional distress [None]
  - Motor dysfunction [None]
  - Hypoaesthesia [None]
  - Hemianopia homonymous [None]
